FAERS Safety Report 15282662 (Version 2)
Quarter: 2018Q4

REPORT INFORMATION
  Report Type: Spontaneous
  Country: US (occurrence: US)
  Receive Date: 20180816
  Receipt Date: 20181031
  Transmission Date: 20190204
  Serious: No
  Sender: FDA-Public Use
  Company Number: US-BIOGEN-2018BI00618967

PATIENT
  Sex: Female
  Weight: 53.57 kg

DRUGS (5)
  1. CALCIUM 600 [Concomitant]
     Route: 065
  2. BETASERON [Concomitant]
     Active Substance: INTERFERON BETA-1B
     Route: 065
  3. ONE-A-DAY WOMENS FORMULA [Concomitant]
     Route: 065
  4. PLEGRIDY [Suspect]
     Active Substance: PEGINTERFERON BETA-1A
     Indication: MULTIPLE SCLEROSIS
     Route: 058
  5. TETRACYCLINE HCL [Concomitant]
     Active Substance: TETRACYCLINE HYDROCHLORIDE
     Route: 065

REACTIONS (1)
  - Influenza like illness [Unknown]
